FAERS Safety Report 10947851 (Version 2)
Quarter: 2015Q2

REPORT INFORMATION
  Report Type: Report from Study
  Country: DE (occurrence: DE)
  Receive Date: 20150324
  Receipt Date: 20150408
  Transmission Date: 20150821
  Serious: Yes (Death)
  Sender: FDA-Public Use
  Company Number: DE-BEH-2015049685

PATIENT
  Age: 57 Year
  Sex: Female
  Weight: 67 kg

DRUGS (8)
  1. PRIVIGEN [Suspect]
     Active Substance: HUMAN IMMUNOGLOBULIN G
     Indication: INFECTION
     Dosage: INFUSION RATE MIN. 1.5 ML/MIN, MAX. 2.0 ML/MIN
     Route: 042
     Dates: start: 20130909, end: 20130909
  2. LYRICA [Concomitant]
     Active Substance: PREGABALIN
     Indication: PRODUCT USED FOR UNKNOWN INDICATION
  3. PRIVIGEN [Suspect]
     Active Substance: HUMAN IMMUNOGLOBULIN G
     Indication: CHRONIC LYMPHOCYTIC LEUKAEMIA
     Dosage: INFUSION RATE MIN. 1.5 ML/MIN, MAX. 2.0 ML/MIN
     Route: 042
     Dates: start: 20130820, end: 20130820
  4. PRIVIGEN [Suspect]
     Active Substance: HUMAN IMMUNOGLOBULIN G
     Indication: SECONDARY IMMUNODEFICIENCY
     Dosage: INFUSION RATE MIN. 1.5 ML/MIN, MAX. 2.0 ML/MIN
     Route: 042
     Dates: start: 20130924, end: 20130924
  5. PREDNI [Concomitant]
     Active Substance: PREDNISONE ACETATE
     Indication: PREMEDICATION
     Route: 042
     Dates: start: 20130820, end: 20130820
  6. PREDNI [Concomitant]
     Active Substance: PREDNISONE ACETATE
     Route: 042
     Dates: start: 20130924, end: 20130924
  7. TAVEGIL [Concomitant]
     Active Substance: CLEMASTINE FUMARATE
     Indication: PREMEDICATION
     Route: 042
     Dates: start: 20130820, end: 20130820
  8. TAVEGIL [Concomitant]
     Active Substance: CLEMASTINE FUMARATE
     Route: 042
     Dates: start: 20130924, end: 20130924

REACTIONS (1)
  - Neoplasm malignant [Fatal]
